FAERS Safety Report 8878839 (Version 2)
Quarter: 2013Q1

REPORT INFORMATION
  Report Type: Report from Study
  Country: US (occurrence: US)
  Receive Date: 20121030
  Receipt Date: 20130208
  Transmission Date: 20140127
  Serious: Yes (Other)
  Sender: FDA-Public Use
  Company Number: US-VERTEX PHARMACEUTICAL INC.-2012-023623

PATIENT
  Sex: Female
  Weight: 68 kg

DRUGS (4)
  1. VX-950 (TELAPREVIR) [Suspect]
     Indication: HEPATITIS C
     Dosage: 750 MG, TID
     Route: 048
     Dates: start: 20121002
  2. PEGASYS [Suspect]
     Indication: HEPATITIS C
     Dosage: 135 ?G, QW
     Route: 058
     Dates: start: 20121002
  3. RIBASPHERE [Suspect]
     Indication: HEPATITIS C
     Dosage: 600 MG, BID
     Route: 048
     Dates: start: 20121002
  4. RIBASPHERE [Suspect]
     Dosage: 400 MG, BID
     Route: 048

REACTIONS (5)
  - Anaemia [Unknown]
  - Laboratory test abnormal [Unknown]
  - Influenza like illness [Unknown]
  - Fatigue [Unknown]
  - Diarrhoea [Unknown]
